FAERS Safety Report 8138101-7 (Version None)
Quarter: 2012Q1

REPORT INFORMATION
  Report Type: 
  Country: None (occurrence: None)
  Receive Date: 20120215
  Receipt Date: 20120215
  Transmission Date: 20120608
  Serious: No
  Sender: FDA-Public Use
  Company Number: None

PATIENT
  Age: 57 Year
  Sex: Male
  Weight: 90.718 kg

DRUGS (2)
  1. CLONAZEPAM [Concomitant]
     Indication: POST-TRAUMATIC STRESS DISORDER
     Dosage: 2 MG
     Route: 048
     Dates: start: 20111108, end: 20120112
  2. CLONAZEPAM [Suspect]
     Indication: ANXIETY
     Dosage: 2 MG
     Route: 048
     Dates: start: 20110730, end: 20111108

REACTIONS (4)
  - DRUG INEFFECTIVE [None]
  - DIZZINESS [None]
  - PRODUCT MEASURED POTENCY ISSUE [None]
  - NAUSEA [None]
